FAERS Safety Report 14997263 (Version 1)
Quarter: 2018Q2

REPORT INFORMATION
  Report Type: Spontaneous
  Country: US (occurrence: US)
  Receive Date: 20180518
  Receipt Date: 20180518
  Transmission Date: 20180711
  Serious: Yes (Life-Threatening, Hospitalization, Other)
  Sender: FDA-Public Use
  Company Number: None

PATIENT
  Age: 10 Year
  Sex: Male
  Weight: 35.5 kg

DRUGS (14)
  1. VANCOMYCINE [Concomitant]
     Active Substance: VANCOMYCIN
  2. ONDANSETRON [Concomitant]
     Active Substance: ONDANSETRON
  3. NALBUPHINE [Concomitant]
     Active Substance: NALBUPHINE
  4. GABAPENTIN. [Concomitant]
     Active Substance: GABAPENTIN
  5. SULFAMETHOXAZOLE/TRIMETHOPRIM [Concomitant]
     Active Substance: SULFAMETHOXAZOLE\TRIMETHOPRIM
  6. ACETAMINOPHEN. [Concomitant]
     Active Substance: ACETAMINOPHEN
  7. ALLOPURINOL. [Concomitant]
     Active Substance: ALLOPURINOL
  8. MICAFUNGIN [Concomitant]
     Active Substance: MICAFUNGIN
  9. CYCLOPHOSPHAMIDE. [Suspect]
     Active Substance: CYCLOPHOSPHAMIDE
  10. TEMSIROLIMUS 15MG/M2 IV [Suspect]
     Active Substance: TEMSIROLIMUS
     Indication: ACUTE LYMPHOCYTIC LEUKAEMIA
     Dosage: OTHER FREQUENCY:1X/DAY DAY 1,8;?
     Route: 042
     Dates: start: 20180423, end: 20180430
  11. ETOPOSIDE. [Suspect]
     Active Substance: ETOPOSIDE
     Dosage: OTHER FREQUENCY:DAILY X5 (DAY 1-5);?
     Route: 042
  12. ZOSYN [Concomitant]
     Active Substance: PIPERACILLIN SODIUM\TAZOBACTAM SODIUM
  13. PCA HYDROMORPHONE [Concomitant]
  14. LIDOCAINE. [Concomitant]
     Active Substance: LIDOCAINE

REACTIONS (8)
  - Pericarditis [None]
  - Neck pain [None]
  - Febrile neutropenia [None]
  - Pericardial effusion [None]
  - Aspergillus test positive [None]
  - Subdural haematoma [None]
  - Pneumonitis [None]
  - Pleural effusion [None]

NARRATIVE: CASE EVENT DATE: 20180508
